FAERS Safety Report 5690056-0 (Version None)
Quarter: 2008Q1

REPORT INFORMATION
  Report Type: 
  Country: None (occurrence: None)
  Receive Date: 20080331
  Receipt Date: 20080331
  Transmission Date: 20080703
  Serious: No
  Sender: FDA-Public Use
  Company Number: None

PATIENT
  Sex: Female
  Weight: 66.6788 kg

DRUGS (1)
  1. LEVAQUIN [Suspect]
     Indication: INFECTION
     Dosage: 750 1 DAILY CUTANEOUS
     Route: 003
     Dates: start: 20071222, end: 20071226

REACTIONS (3)
  - ARTHRALGIA [None]
  - ARTHROPATHY [None]
  - PAIN [None]
